FAERS Safety Report 5612665-7 (Version None)
Quarter: 2008Q1

REPORT INFORMATION
  Report Type: 
  Country: None (occurrence: None)
  Receive Date: 20080201
  Receipt Date: 20080201
  Transmission Date: 20080703
  Serious: No
  Sender: FDA-Public Use
  Company Number: None

PATIENT
  Sex: Male
  Weight: 76 kg

DRUGS (1)
  1. TEMOZOLOMIDE [Suspect]
     Dosage: 2090 MG

REACTIONS (1)
  - THROMBOCYTOPENIA [None]
